FAERS Safety Report 4262966-2 (Version None)
Quarter: 2004Q1

REPORT INFORMATION
  Report Type: 
  Country: None (occurrence: None)
  Receive Date: 20040102
  Receipt Date: 20040102
  Transmission Date: 20041129
  Serious: Yes (Life-Threatening, Hospitalization)
  Sender: FDA-Public Use
  Company Number: None

PATIENT
  Age: 37 Year
  Sex: Male
  Weight: 81.1939 kg

DRUGS (3)
  1. PEGINTERFERON ALPHA 2A 180 MICROGRAMS [Suspect]
     Indication: HEPATITIS C VIRUS
     Dosage: 180 MCG/WK/SQ
     Route: 058
     Dates: start: 20030414, end: 20030929
  2. RIBAVIRIN [Suspect]
     Indication: HEPATITIS C VIRUS
     Dosage: 400 MG/BID/PO
     Route: 048
     Dates: start: 20030414, end: 20031006
  3. NEUPOGEN [Concomitant]

REACTIONS (2)
  - ANAEMIA [None]
  - VIRAL INFECTION [None]
